FAERS Safety Report 14263208 (Version 2)
Quarter: 2022Q4

REPORT INFORMATION
  Report Type: Spontaneous
  Country: IT (occurrence: IT)
  Receive Date: 20171208
  Receipt Date: 20221129
  Transmission Date: 20230113
  Serious: Yes (Hospitalization)
  Sender: FDA-Public Use
  Company Number: IT-AUROBINDO-AUR-APL-2017-44070

PATIENT
  Age: 22 Year
  Sex: Female

DRUGS (4)
  1. ALPRAZOLAM [Suspect]
     Active Substance: ALPRAZOLAM
     Indication: Product used for unknown indication
     Dosage: 7.5 MG, ONCE/SINGLE ; IN TOTAL
     Route: 048
     Dates: start: 20170924, end: 20170924
  2. ALPRAZOLAM [Suspect]
     Active Substance: ALPRAZOLAM
     Indication: Intentional overdose
  3. CIPROFLOXACIN [Suspect]
     Active Substance: CIPROFLOXACIN
     Indication: Product used for unknown indication
     Dosage: IN TOTAL
     Route: 048
     Dates: start: 20170924, end: 20170924
  4. ASPIRIN [Suspect]
     Active Substance: ASPIRIN
     Indication: Product used for unknown indication
     Dosage: 4 DF, ONCE/SINGLE ; IN TOTAL
     Route: 048
     Dates: start: 20170924, end: 20170924

REACTIONS (4)
  - Bradyphrenia [Recovered/Resolved]
  - Hypokinesia [Recovered/Resolved]
  - Intentional overdose [Unknown]
  - Drug abuse [Recovered/Resolved]

NARRATIVE: CASE EVENT DATE: 20170924
